FAERS Safety Report 5661907-0 (Version None)
Quarter: 2008Q2

REPORT INFORMATION
  Report Type: 
  Country: None (occurrence: None)
  Receive Date: 20080201
  Receipt Date: 20060909
  Transmission Date: 20081010
  Serious: Yes (Hospitalization)
  Sender: FDA-Public Use
  Company Number: 20084637

PATIENT
  Sex: Male

DRUGS (1)
  1. LIORESAL [Suspect]
     Indication: MUSCLE SPASTICITY
     Dosage: DAILY, INTRATHECAL
     Route: 037

REACTIONS (6)
  - CONSTIPATION [None]
  - HYPERHIDROSIS [None]
  - PAIN [None]
  - TREMOR [None]
  - URINARY RETENTION [None]
  - WITHDRAWAL SYNDROME [None]
